FAERS Safety Report 19867835 (Version 2)
Quarter: 2021Q3

REPORT INFORMATION
  Report Type: Spontaneous
  Country: IR (occurrence: IR)
  Receive Date: 20210922
  Receipt Date: 20210923
  Transmission Date: 20211014
  Serious: Yes (Hospitalization)
  Sender: FDA-Public Use
  Company Number: IR-PERRIGO-21IR024863

PATIENT
  Age: 15 Year
  Sex: Female

DRUGS (2)
  1. N?ACETYLCYSTEINE [Suspect]
     Active Substance: ACETYLCYSTEINE
     Indication: OVERDOSE
     Dosage: 10 FOLD OVERDOSE IN INITIAL LOADING DOSE AND MAINTENANCE DOSE
     Route: 042
  2. ACETAMINOPHEN. [Suspect]
     Active Substance: ACETAMINOPHEN
     Indication: SUICIDE ATTEMPT
     Dosage: 15,000 MG, SINGLE
     Route: 048

REACTIONS (3)
  - Intentional overdose [Recovered/Resolved]
  - Acute kidney injury [Unknown]
  - Haemolytic uraemic syndrome [Unknown]
